FAERS Safety Report 9432014 (Version 1)
Quarter: 2013Q3

REPORT INFORMATION
  Report Type: Spontaneous
  Country: US (occurrence: US)
  Receive Date: 20130731
  Receipt Date: 20130731
  Transmission Date: 20140515
  Serious: Yes (Death, Other)
  Sender: FDA-Public Use
  Company Number: US-TEVA-421510USA

PATIENT
  Age: 56 Year
  Sex: Female

DRUGS (5)
  1. BUPRENORPHINE [Suspect]
     Route: 048
  2. LAMOTRIGINE [Suspect]
     Route: 048
  3. NAPROXEN [Suspect]
     Route: 048
  4. SALICYLATES NOS [Suspect]
     Route: 048
  5. ZOLPIDEM [Suspect]
     Route: 048

REACTIONS (1)
  - Completed suicide [Fatal]
